FAERS Safety Report 25245816 (Version 3)
Quarter: 2025Q4

REPORT INFORMATION
  Report Type: Other
  Country: US (occurrence: US)
  Receive Date: 20250428
  Receipt Date: 20251027
  Transmission Date: 20260118
  Serious: No
  Sender: TRAVERE THERAPEUTICS
  Company Number: US-TRAVERE-2025TVT00305

PATIENT
  Sex: Female

DRUGS (4)
  1. FILSPARI [Suspect]
     Active Substance: SPARSENTAN
     Indication: IgA nephropathy
     Route: 048
     Dates: start: 20241231
  2. FILSPARI [Suspect]
     Active Substance: SPARSENTAN
     Route: 048
  3. OZEMPIC [Concomitant]
     Active Substance: SEMAGLUTIDE
  4. MOUNJARO [Concomitant]
     Active Substance: TIRZEPATIDE

REACTIONS (3)
  - Pruritus [None]
  - Pain [None]
  - Blood test abnormal [Unknown]
